FAERS Safety Report 7207679-X (Version None)
Quarter: 2011Q1

REPORT INFORMATION
  Report Type: 
  Country: None (occurrence: None)
  Receive Date: 20110103
  Receipt Date: 20101221
  Transmission Date: 20110831
  Serious: Yes (Hospitalization)
  Sender: FDA-Public Use
  Company Number: FR-GENENTECH-311690

PATIENT
  Sex: Female

DRUGS (7)
  1. OMEPRAZOLE [Concomitant]
     Indication: PRODUCT USED FOR UNKNOWN INDICATION
     Dosage: UNK
  2. CORTANCYL [Concomitant]
     Indication: HAEMOLYTIC ANAEMIA
     Dosage: UNK
     Dates: end: 20101110
  3. ISOPTIN [Concomitant]
     Indication: PRODUCT USED FOR UNKNOWN INDICATION
     Dosage: UNK
  4. MABTHERA [Suspect]
     Dosage: 570 MG, UNK
     Route: 042
     Dates: start: 20101028, end: 20101028
  5. MABTHERA [Suspect]
     Dosage: 570 MG, UNK
     Route: 042
     Dates: start: 20101007, end: 20101007
  6. MABTHERA [Suspect]
     Indication: B-CELL LYMPHOMA
     Dosage: 570 MG, UNK
     Route: 042
     Dates: start: 20100916, end: 20100916
  7. CORTANCYL [Concomitant]
     Dosage: UNK

REACTIONS (1)
  - VISUAL ACUITY REDUCED [None]
